FAERS Safety Report 7553404-2 (Version None)
Quarter: 2011Q2

REPORT INFORMATION
  Report Type: 
  Country: None (occurrence: None)
  Receive Date: 20110614
  Receipt Date: 20110614
  Transmission Date: 20111010
  Serious: Yes (Hospitalization)
  Sender: FDA-Public Use
  Company Number: None

PATIENT
  Sex: Male
  Weight: 65.6 kg

DRUGS (1)
  1. SUNITINIB MALATE [Suspect]
     Indication: RENAL CANCER METASTATIC
     Dosage: 50MG PO QD X28 DAYS/6WKS

REACTIONS (1)
  - GASTROINTESTINAL HAEMORRHAGE [None]
